FAERS Safety Report 4864869-9 (Version None)
Quarter: 2005Q4

REPORT INFORMATION
  Report Type: 
  Country: None (occurrence: None)
  Receive Date: 20051201
  Receipt Date: 20050722
  Transmission Date: 20060501
  Serious: No
  Sender: FDA-Public Use
  Company Number: 2005PV000553

PATIENT
  Age: 47 Year
  Sex: Male
  Weight: 111.1313 kg

DRUGS (9)
  1. BYETTA [Suspect]
     Indication: DIABETES MELLITUS NON-INSULIN-DEPENDENT
     Dosage: 5 MCG; BID; SC
     Route: 058
     Dates: start: 20050721
  2. METFORMIN/GLYBURIDE [Concomitant]
  3. ACTOS [Concomitant]
  4. NIASPAN [Concomitant]
  5. ASPIRIN [Concomitant]
  6. LIPITOR [Concomitant]
  7. OMEPRAZOLE [Concomitant]
  8. INDERAL [Concomitant]
  9. MULTIVITAMIN [Concomitant]

REACTIONS (4)
  - DISSOCIATION [None]
  - FEELING ABNORMAL [None]
  - FEELING JITTERY [None]
  - NAUSEA [None]
